FAERS Safety Report 15731798 (Version 2)
Quarter: 2019Q3

REPORT INFORMATION
  Report Type: Spontaneous
  Country: US (occurrence: US)
  Receive Date: 20181217
  Receipt Date: 20190708
  Transmission Date: 20191004
  Serious: No
  Sender: FDA-Public Use
  Company Number: US-MYLANLABS-2018M1092682

PATIENT
  Sex: Male
  Weight: 76.2 kg

DRUGS (3)
  1. ALPROSTADIL. [Suspect]
     Active Substance: ALPROSTADIL
     Indication: ERECTILE DYSFUNCTION
     Dosage: 1000 MICROGRAM, PRN
     Route: 066
     Dates: start: 2002
  2. SIMVASTATIN. [Concomitant]
     Active Substance: SIMVASTATIN
     Indication: CHOLESTEROSIS
     Dosage: UNK
  3. ALPROSTADIL. [Suspect]
     Active Substance: ALPROSTADIL
     Dosage: 1000 MICROGRAM, PRN
     Route: 066
     Dates: start: 20181119

REACTIONS (2)
  - Drug ineffective [Unknown]
  - Product administration error [Recovered/Resolved]
